FAERS Safety Report 11875544 (Version 3)
Quarter: 2016Q1

REPORT INFORMATION
  Report Type: Spontaneous
  Country: IN (occurrence: IN)
  Receive Date: 20151229
  Receipt Date: 20160126
  Transmission Date: 20160526
  Serious: Yes (Other)
  Sender: FDA-Public Use
  Company Number: IN-BAYER-2015-490802

PATIENT
  Age: 27 Year
  Sex: Female
  Weight: 45 kg

DRUGS (10)
  1. ARTESUNATE [Concomitant]
     Active Substance: ARTESUNATE
     Route: 048
  2. NIFEDIPINE. [Suspect]
     Active Substance: NIFEDIPINE
     Indication: UTERINE CONTRACTIONS DURING PREGNANCY
     Dosage: 5-10 MG WHEN REQUIRED
  3. METRONIDAZOLE. [Concomitant]
     Active Substance: METRONIDAZOLE
     Dosage: 500 MG, 8 HOURLY
     Route: 042
  4. BETAMETHASONE. [Concomitant]
     Active Substance: BETAMETHASONE
     Indication: MATERNAL THERAPY TO ENHANCE FOETAL LUNG MATURITY
     Dosage: 12 MG, QD
     Route: 030
  5. THIOPENTONE [Concomitant]
     Active Substance: THIOPENTAL SODIUM
     Dosage: 200 MG, UNK
  6. CEFOTAXIME [Concomitant]
     Active Substance: CEFOTAXIME SODIUM
     Route: 042
  7. OXYGEN. [Concomitant]
     Active Substance: OXYGEN
     Dosage: 5-6 L/MIN
  8. AMIKACIN [Concomitant]
     Active Substance: AMIKACIN
     Dosage: 500 MG, 12 HOURLY
     Route: 042
  9. SUCCINYLCHOLINE CHLORIDE. [Concomitant]
     Active Substance: SUCCINYLCHOLINE CHLORIDE
     Dosage: 75 MG, UNK
  10. LEVOFLOXACIN. [Concomitant]
     Active Substance: LEVOFLOXACIN
     Dosage: 500 MG, QD
     Route: 042

REACTIONS (5)
  - Maternal exposure during pregnancy [None]
  - Respiratory disorder [Recovered/Resolved]
  - Procedural haemorrhage [None]
  - Premature labour [None]
  - Off label use [None]
